FAERS Safety Report 21531287 (Version 1)
Quarter: 2022Q4

REPORT INFORMATION
  Report Type: Spontaneous
  Country: US (occurrence: None)
  Receive Date: 20221028
  Receipt Date: 20221028
  Transmission Date: 20230113
  Serious: No
  Sender: FDA-Public Use
  Company Number: None

PATIENT
  Age: 63 Year
  Sex: Male

DRUGS (1)
  1. NIRMATRELVIR\RITONAVIR [Suspect]
     Active Substance: NIRMATRELVIR\RITONAVIR
     Indication: Upper respiratory tract infection
     Dosage: OTHER QUANTITY : 300/150MG;?FREQUENCY : TWICE A DAY;?
     Route: 048
     Dates: start: 20220525, end: 20220530

REACTIONS (2)
  - Dysgeusia [None]
  - Chest pain [None]

NARRATIVE: CASE EVENT DATE: 20220527
